FAERS Safety Report 12472772 (Version 1)
Quarter: 2016Q2

REPORT INFORMATION
  Report Type: Spontaneous
  Country: US (occurrence: US)
  Receive Date: 20160616
  Receipt Date: 20160616
  Transmission Date: 20160815
  Serious: No
  Sender: FDA-Public Use
  Company Number: GXBR2015US001474

PATIENT
  Sex: Male

DRUGS (1)
  1. SWIM-EAR [Suspect]
     Active Substance: ISOPROPYL ALCOHOL
     Indication: MIDDLE EAR EFFUSION
     Dosage: 4 TO 5 DROPS INSTILLED 2 OR 3 TIMES
     Route: 001
     Dates: start: 201504

REACTIONS (2)
  - Ear discomfort [Not Recovered/Not Resolved]
  - Drug ineffective [Not Recovered/Not Resolved]
